FAERS Safety Report 4456105-2 (Version None)
Quarter: 2004Q3

REPORT INFORMATION
  Report Type: 
  Country: None (occurrence: None)
  Receive Date: 20040920
  Receipt Date: 20040908
  Transmission Date: 20050211
  Serious: No
  Sender: FDA-Public Use
  Company Number: 04H-167-0272808-00

PATIENT
  Age: 45 Year
  Sex: Male
  Weight: 80 kg

DRUGS (5)
  1. ETOMIDATE [Suspect]
     Indication: ANAESTHESIA
     Dosage: 20 + 30 MG, 2 IN 1 D, DAY 1 - DAY 1, DAY 2 - DAY 2
  2. ALCURONIUM [Concomitant]
  3. SUCCINYLCHOLINE CHLORIDE [Concomitant]
  4. MIDAZOLAM HCL [Concomitant]
  5. ISOTONIC SOLUTIONS [Concomitant]

REACTIONS (6)
  - ADRENAL INSUFFICIENCY [None]
  - ARTERIAL DISORDER [None]
  - BLOOD GASES ABNORMAL [None]
  - BLOOD PRESSURE SYSTOLIC DECREASED [None]
  - CARDIOVASCULAR DISORDER [None]
  - HYPOTENSION [None]
